FAERS Safety Report 7302462-9 (Version None)
Quarter: 2011Q1

REPORT INFORMATION
  Report Type: 
  Country: None (occurrence: None)
  Receive Date: 20110218
  Receipt Date: 20110210
  Transmission Date: 20110831
  Serious: No
  Sender: FDA-Public Use
  Company Number: B0700156A

PATIENT
  Sex: Female

DRUGS (1)
  1. RELENZA [Suspect]
     Dosage: 4IUAX PER DAY
     Route: 055

REACTIONS (3)
  - LACRIMATION INCREASED [None]
  - INAPPROPRIATE SCHEDULE OF DRUG ADMINISTRATION [None]
  - NASAL DISCOMFORT [None]
